FAERS Safety Report 25744862 (Version 1)
Quarter: 2025Q3

REPORT INFORMATION
  Report Type: Spontaneous
  Country: CA (occurrence: CA)
  Receive Date: 20250901
  Receipt Date: 20250901
  Transmission Date: 20251021
  Serious: Yes (Other)
  Sender: CELLTRION
  Company Number: CA-CELLTRION INC.-2025CA030690

PATIENT

DRUGS (8)
  1. TRUXIMA [Suspect]
     Active Substance: RITUXIMAB-ABBS
     Indication: Product used for unknown indication
     Route: 042
  2. ACETAMINOPHEN [Concomitant]
     Active Substance: ACETAMINOPHEN
  3. GRANISETRON [Concomitant]
     Active Substance: GRANISETRON
  4. HYDROMORPHONE [Concomitant]
     Active Substance: HYDROMORPHONE
  5. LUMIGAN [Concomitant]
     Active Substance: BIMATOPROST
  6. MYRBETRIQ [Concomitant]
     Active Substance: MIRABEGRON
  7. PREDNISONE [Concomitant]
     Active Substance: PREDNISONE
  8. ALBUTEROL [Concomitant]
     Active Substance: ALBUTEROL

REACTIONS (3)
  - Peripheral coldness [Recovered/Resolved]
  - Chills [Recovered/Resolved]
  - Tremor [Recovered/Resolved]
